FAERS Safety Report 25275045 (Version 5)
Quarter: 2025Q3

REPORT INFORMATION
  Report Type: Spontaneous
  Country: US (occurrence: US)
  Receive Date: 20250506
  Receipt Date: 20250819
  Transmission Date: 20251020
  Serious: No
  Sender: PFIZER
  Company Number: US-PFIZER INC-PV202400054854

PATIENT
  Age: 80 Year
  Sex: Female
  Weight: 64.853 kg

DRUGS (1)
  1. PREMPRO [Suspect]
     Active Substance: ESTROGENS, CONJUGATED\MEDROXYPROGESTERONE ACETATE
     Indication: Menopausal symptoms
     Dosage: 0.45MG-1.5MG, 1X/DAY
     Route: 048
     Dates: start: 20100904

REACTIONS (2)
  - Vertigo [Recovered/Resolved]
  - Intentional dose omission [Unknown]
